FAERS Safety Report 15451455 (Version 6)
Quarter: 2019Q1

REPORT INFORMATION
  Report Type: Spontaneous
  Country: JP (occurrence: JP)
  Receive Date: 20181001
  Receipt Date: 20190122
  Transmission Date: 20190417
  Serious: No
  Sender: FDA-Public Use
  Company Number: JP-PFIZER INC-2018393638

PATIENT
  Age: 56 Year
  Sex: Male
  Weight: 95 kg

DRUGS (31)
  1. INSULIN [Concomitant]
     Active Substance: INSULIN NOS
     Indication: DIABETES MELLITUS MANAGEMENT
     Dosage: UNK
     Route: 065
  2. HUMULIN N [Concomitant]
     Active Substance: INSULIN HUMAN
     Indication: DIABETES MELLITUS
     Dosage: 40 IU, TWICE DAILY, BEFORE WORK 40 IU, AT BEDTIME 40 IU
     Route: 058
     Dates: end: 20170507
  3. METGLUCO [Suspect]
     Active Substance: METFORMIN HYDROCHLORIDE
     Dosage: 500 MG, TWICE DAILY, AFTER MORNING AND EVENING MEALS, REDUCED TO 2T
     Route: 048
  4. OLMETEC [Concomitant]
     Active Substance: OLMESARTAN MEDOXOMIL
     Indication: HYPERTENSION
     Dosage: 40 MG, 2X/DAY (2 TABLETS)
     Route: 065
     Dates: end: 20170507
  5. ALTEPLASE. [Concomitant]
     Active Substance: ALTEPLASE
     Indication: THROMBOTIC CEREBRAL INFARCTION
     Dosage: 0.6 MG/KG, UNKNOWN FREQ. 10%
     Route: 042
  6. RADICUT [Concomitant]
     Active Substance: EDARAVONE
     Dosage: UNK
  7. DELLEGRA [Concomitant]
     Active Substance: FEXOFENADINE HYDROCHLORIDE\PSEUDOEPHEDRINE HYDROCHLORIDE
     Indication: SEASONAL ALLERGY
     Dosage: UNK UNK, UNKNOWN FREQ.
     Route: 065
     Dates: end: 20170507
  8. METGLUCO [Suspect]
     Active Substance: METFORMIN HYDROCHLORIDE
     Indication: DIABETES MELLITUS MANAGEMENT
     Dosage: 1000 MG, TWICE DAILY, AFTER BREAKFAST AND DINNER
     Route: 048
  9. BAYASPIRIN [Concomitant]
     Active Substance: ASPIRIN
     Indication: ANTIPLATELET THERAPY
     Dosage: 300 MG, 1X/DAY
     Route: 065
  10. JANUVIA [Concomitant]
     Active Substance: SITAGLIPTIN PHOSPHATE
     Indication: DIABETES MELLITUS
     Dosage: 50 MG, 1X/DAY
     Route: 065
     Dates: end: 20170507
  11. LIVALO [Concomitant]
     Active Substance: PITAVASTATIN CALCIUM
     Indication: DYSLIPIDAEMIA
     Dosage: 2 MG, 1X/DAY
     Route: 065
     Dates: end: 20170507
  12. ALTEPLASE. [Concomitant]
     Active Substance: ALTEPLASE
     Dosage: 0.6 MG/KG, UNKNOWN FREQ , THE REST WAS CONTINUOUSLY AND INTRAVENOUSLY ADMINISTERED FOR 1 HOUR
     Route: 042
  13. RADICUT [Concomitant]
     Active Substance: EDARAVONE
     Indication: PARALYSIS
     Dosage: 30 MG, UNK
     Route: 065
  14. NORVASC [Concomitant]
     Active Substance: AMLODIPINE BESYLATE
     Indication: HYPERTENSION
     Dosage: 5 MG, 1X/DAY
     Route: 065
     Dates: end: 20170507
  15. LIPITOR [Suspect]
     Active Substance: ATORVASTATIN CALCIUM
     Indication: DYSLIPIDAEMIA
     Dosage: 10 MG, 1X/DAY
     Route: 048
  16. LIPITOR [Suspect]
     Active Substance: ATORVASTATIN CALCIUM
     Dosage: 10 MG, 1X/DAY
     Route: 048
  17. LIPITOR [Suspect]
     Active Substance: ATORVASTATIN CALCIUM
     Dosage: 10 MG, 1X/DAY
     Route: 048
  18. OLMETEC [Concomitant]
     Active Substance: OLMESARTAN MEDOXOMIL
     Dosage: 40 MG, 1X/DAY
     Route: 065
  19. AMLODIN [Concomitant]
     Active Substance: AMLODIPINE BESYLATE
     Indication: HYPERTENSION
     Dosage: 5 MG, 1X/DAY (1 TABLET)
     Route: 065
  20. METGLUCO [Suspect]
     Active Substance: METFORMIN HYDROCHLORIDE
     Dosage: 1000 MG, ONCE DAILY
     Route: 065
  21. LANTUS XR [Concomitant]
     Active Substance: INSULIN GLARGINE
     Dosage: 40 IU, 2X/DAY (40 UNITS IN THE MORNING AND 40 UNITS IN THE EVENING (AFTER BREAKFAST AND DINNER))
     Route: 065
  22. METGLUCO [Suspect]
     Active Substance: METFORMIN HYDROCHLORIDE
     Dosage: 500 MG, TWICE DAILY, AFTER BREAKFAST AND DINNER, 4 TABLETS
     Route: 048
  23. METGLUCO [Suspect]
     Active Substance: METFORMIN HYDROCHLORIDE
     Dosage: 250 MG, 1X/DAY
     Route: 048
  24. BAYASPIRIN [Concomitant]
     Active Substance: ASPIRIN
     Dosage: 200 MG, UNK
  25. PROHEPARUM [Concomitant]
     Active Substance: CHOLINE BITARTRATE\CYSTEINE\INOSITOL\MAMMAL LIVER
     Dosage: UNK UNK, UNKNOWN FREQ.
     Route: 065
     Dates: end: 20170507
  26. SLONNON [Concomitant]
     Active Substance: ARGATROBAN
     Dosage: 60 MG, 1X/DAY
     Route: 065
  27. SLONNON [Concomitant]
     Active Substance: ARGATROBAN
     Dosage: 60 MG, 1X/DAY
     Route: 065
  28. TAKELDA [Concomitant]
     Active Substance: ASPIRIN\LANSOPRAZOLE
     Dosage: 1 DF, 1X/DAY (1 T)
     Route: 065
  29. SUGLAT [Concomitant]
     Active Substance: IPRAGLIFLOZIN L-PROLINE
     Indication: DIABETES MELLITUS
     Dosage: 50 MG, 1X/DAY (1 TABLET)
     Route: 048
     Dates: end: 20170507
  30. SLONNON [Concomitant]
     Active Substance: ARGATROBAN
     Indication: THROMBOSIS PROPHYLAXIS
     Dosage: 60 MG, 1X/DAY
     Route: 065
  31. LANTUS XR [Concomitant]
     Active Substance: INSULIN GLARGINE
     Indication: DIABETES MELLITUS MANAGEMENT
     Dosage: 4 IU, UNK
     Route: 065

REACTIONS (1)
  - Diarrhoea [Not Recovered/Not Resolved]
